FAERS Safety Report 25639413 (Version 1)
Quarter: 2025Q3

REPORT INFORMATION
  Report Type: Report from Study
  Country: US (occurrence: US)
  Receive Date: 20250804
  Receipt Date: 20250804
  Transmission Date: 20251020
  Serious: No
  Sender: AURINIA PHARMACEUTICALS
  Company Number: US-AURINIA PHARMACEUTICALS INC.-AUR-009286

PATIENT
  Age: 42 Year
  Sex: Female

DRUGS (2)
  1. LUPKYNIS [Suspect]
     Active Substance: VOCLOSPORIN
     Indication: Lupus nephritis
     Dosage: 23.7 MILLIGRAM, BID
     Route: 048
     Dates: start: 20240202
  2. LISINOPRIL [Concomitant]
     Active Substance: LISINOPRIL
     Indication: Blood pressure measurement
     Dosage: 2.5 MILLIGRAM, QD

REACTIONS (3)
  - Hypersensitivity [Not Recovered/Not Resolved]
  - Stress [Unknown]
  - Hypertension [Unknown]

NARRATIVE: CASE EVENT DATE: 20241204
